FAERS Safety Report 4289158-5 (Version None)
Quarter: 2004Q1

REPORT INFORMATION
  Report Type: 
  Country: None (occurrence: None)
  Receive Date: 20040206
  Receipt Date: 20040126
  Transmission Date: 20041129
  Serious: Yes (Hospitalization, Other)
  Sender: FDA-Public Use
  Company Number: M2004.6992

PATIENT
  Age: 54 Year
  Sex: Female

DRUGS (1)
  1. DICLOFENAC, UNK, UNSPECIFIED MANUFACTURER [Suspect]
     Indication: ARTHRALGIA

REACTIONS (3)
  - ABDOMINAL MASS [None]
  - FAECALITH [None]
  - INTESTINAL STENOSIS [None]
